FAERS Safety Report 8851316 (Version 1)
Quarter: 2012Q4

REPORT INFORMATION
  Report Type: 
  Country: US (occurrence: US)
  Receive Date: 20121020
  Receipt Date: 20121020
  Transmission Date: 20130627
  Serious: No
  Sender: FDA-Public Use
  Company Number: US-009507513-1210USA007490

PATIENT
  Sex: Female
  Weight: 72.11 kg

DRUGS (1)
  1. NEXPLANON [Suspect]
     Indication: CONTRACEPTION
     Dosage: UNK
     Dates: start: 20120924, end: 20121011

REACTIONS (4)
  - Implant site infection [Recovering/Resolving]
  - Implant site abscess [Recovering/Resolving]
  - Device expulsion [Unknown]
  - Medical device complication [Unknown]
